FAERS Safety Report 22828046 (Version 5)
Quarter: 2024Q1

REPORT INFORMATION
  Report Type: Spontaneous
  Country: US (occurrence: US)
  Receive Date: 20230816
  Receipt Date: 20240326
  Transmission Date: 20240410
  Serious: No
  Sender: FDA-Public Use
  Company Number: US-PFIZER INC-PV202300140055

PATIENT
  Age: 73 Year
  Sex: Female
  Weight: 63.96 kg

DRUGS (1)
  1. IBRANCE [Suspect]
     Active Substance: PALBOCICLIB
     Indication: Neoplasm malignant
     Dosage: 1 TABLET ONCE A DAY AT 4 PM, TOOK IT FOR 3 WEEKS AND 1 WEEK OFF

REACTIONS (3)
  - Memory impairment [Unknown]
  - Dizziness [Unknown]
  - Cough [Unknown]
